FAERS Safety Report 7853471-2 (Version None)
Quarter: 2011Q3

REPORT INFORMATION
  Report Type: 
  Country: None (occurrence: None)
  Receive Date: 20110915
  Receipt Date: 20110203
  Transmission Date: 20111222
  Serious: Yes (Hospitalization, Other)
  Sender: FDA-Public Use
  Company Number: 2011027537

PATIENT
  Sex: Male
  Weight: 80 kg

DRUGS (2)
  1. PRIVIGEN [Suspect]
  2. PRIVIGEN [Suspect]
     Indication: CHRONIC INFLAMMATORY DEMYELINATING POLYRADICULONEUROPATHY
     Dosage: (40 G QD, 2G/KG (40 G) DAILY FOR 4 DAYS (20 GM VIAL) INTRAVENOUS (NOT OTHERWISE SPECIFIED)), (20 GM
     Route: 042
     Dates: start: 20110124, end: 20110127

REACTIONS (2)
  - HAEMOLYTIC ANAEMIA [None]
  - RENAL FAILURE ACUTE [None]
